FAERS Safety Report 8882671 (Version 1)
Quarter: 2012Q4

REPORT INFORMATION
  Report Type: 
  Country: US (occurrence: US)
  Receive Date: 20121105
  Receipt Date: 20121105
  Transmission Date: 20130627
  Serious: Yes (Hospitalization, Other)
  Sender: FDA-Public Use
  Company Number: US-TEVA-368029USA

PATIENT
  Age: 41 Year
  Sex: Female

DRUGS (4)
  1. WARFARIN [Suspect]
     Indication: ANTICOAGULANT THERAPY
     Route: 065
  2. ENOXAPARIN SODIUM [Suspect]
     Indication: ANTICOAGULANT THERAPY
     Dosage: administered as a bridge to warfarin
     Route: 065
  3. ASPIRIN [Suspect]
     Route: 065
  4. HEPARIN [Suspect]
     Indication: ANTICOAGULANT THERAPY
     Dosage: unfractionated
     Route: 041

REACTIONS (6)
  - Lower gastrointestinal haemorrhage [Recovered/Resolved]
  - Haematochezia [Recovered/Resolved]
  - Haemodynamic instability [Recovered/Resolved]
  - Haematoma [Recovered/Resolved]
  - Intestinal ischaemia [Recovered/Resolved]
  - Intestinal obstruction [Recovered/Resolved]
